FAERS Safety Report 7811375-5 (Version None)
Quarter: 2011Q4

REPORT INFORMATION
  Report Type: 
  Country: None (occurrence: None)
  Receive Date: 20111013
  Receipt Date: 20111006
  Transmission Date: 20120403
  Serious: Yes (Other)
  Sender: FDA-Public Use
  Company Number: JP-PFIZER INC-2011066356

PATIENT
  Sex: Male

DRUGS (1)
  1. ZOLOFT [Suspect]
     Dosage: 25 MG/DAY
     Dates: start: 20110324

REACTIONS (3)
  - MANIA [None]
  - SOMNOLENCE [None]
  - NAUSEA [None]
